FAERS Safety Report 5506573-X (Version None)
Quarter: 2007Q4

REPORT INFORMATION
  Report Type: 
  Country: None (occurrence: None)
  Receive Date: 20071105
  Receipt Date: 20071029
  Transmission Date: 20080405
  Serious: Yes (Hospitalization)
  Sender: FDA-Public Use
  Company Number: US-GILEAD-2007-0014036

PATIENT
  Sex: Male

DRUGS (1)
  1. ATRIPLA [Suspect]

REACTIONS (1)
  - LACTIC ACIDOSIS [None]
